FAERS Safety Report 11915815 (Version 1)
Quarter: 2016Q1

REPORT INFORMATION
  Report Type: Spontaneous
  Country: US (occurrence: None)
  Receive Date: 20160113
  Receipt Date: 20160113
  Transmission Date: 20160526
  Serious: Yes (Hospitalization)
  Sender: FDA-Public Use
  Company Number: None

PATIENT
  Age: 50 Year
  Sex: Female
  Weight: 63.6 kg

DRUGS (10)
  1. CITALOPRAM [Concomitant]
     Active Substance: CITALOPRAM HYDROBROMIDE
  2. VIEKIRA PAK [Suspect]
     Active Substance: DASABUVIR\OMBITASVIR\PARITAPREVIR\RITONAVIR
     Indication: HEPATITIS C
     Dosage: 12.4/75/50/250MG
     Route: 048
     Dates: start: 20150623, end: 20150917
  3. ROPINIROLE. [Concomitant]
     Active Substance: ROPINIROLE
  4. LACTULOSE. [Concomitant]
     Active Substance: LACTULOSE
  5. ALPRAZOLAM. [Concomitant]
     Active Substance: ALPRAZOLAM
  6. XIFAXAN [Concomitant]
     Active Substance: RIFAXIMIN
  7. DEXTRAMORPHINE [Concomitant]
  8. SAXAGLIPTIN [Concomitant]
     Active Substance: SAXAGLIPTIN
  9. FUROSEMIDE. [Concomitant]
     Active Substance: FUROSEMIDE
  10. SPIRONOLACTONE. [Concomitant]
     Active Substance: SPIRONOLACTONE

REACTIONS (1)
  - Hyponatraemia [None]

NARRATIVE: CASE EVENT DATE: 20150913
